FAERS Safety Report 10097970 (Version 3)
Quarter: 2014Q2

REPORT INFORMATION
  Report Type: Spontaneous
  Country: DE (occurrence: DE)
  Receive Date: 20140423
  Receipt Date: 20140623
  Transmission Date: 20141212
  Serious: Yes (Hospitalization, Other)
  Sender: FDA-Public Use
  Company Number: DE-BRISTOL-MYERS SQUIBB COMPANY-20347696

PATIENT
  Age: 84 Year
  Sex: Female
  Weight: 69.8 kg

DRUGS (9)
  1. ELIQUIS [Suspect]
     Indication: CEREBROVASCULAR ACCIDENT PROPHYLAXIS
     Dates: start: 20131015, end: 20140217
  2. INSUMAN COMB 25 [Concomitant]
     Dosage: 1DF=28-0-8-0 UNITS NOS
  3. LEVETIRACETAM [Concomitant]
     Dosage: 1DF=1000 (1 1/2)UNITS NOS?DOSE INCREASED: 1000MG, JUN-2013.?1500MG: JAN2014
     Dates: start: 201009
  4. LEVODOPA [Concomitant]
     Dosage: 1DF=100/25 UNITS NOS
  5. OXAZEPAM [Concomitant]
     Dosage: 1DF=10 UNITS NOS
  6. RAMIPRIL [Concomitant]
     Dosage: 1DF=5 UNITS NOS
  7. SIMVASTATIN [Concomitant]
     Dosage: 1DF=40 UNITS NOS
  8. LORAZEPAM [Concomitant]
     Indication: APHASIA
  9. LORAZEPAM [Concomitant]
     Indication: PETIT MAL EPILEPSY

REACTIONS (4)
  - Intestinal haemorrhage [Recovered/Resolved]
  - Bleeding varicose vein [Recovered/Resolved]
  - Convulsion [Not Recovered/Not Resolved]
  - Urinary tract infection [Recovered/Resolved]
